FAERS Safety Report 24535792 (Version 1)
Quarter: 2024Q4

REPORT INFORMATION
  Report Type: Report from Study
  Country: US (occurrence: US)
  Receive Date: 20241022
  Receipt Date: 20241022
  Transmission Date: 20250114
  Serious: Yes (Other)
  Sender: JAZZ
  Company Number: US-JAZZ-2021-US-011929

PATIENT
  Age: 49 Year
  Sex: Female

DRUGS (21)
  1. XYREM [Suspect]
     Active Substance: SODIUM OXYBATE
     Indication: Narcolepsy
     Dosage: 3 GRAM BID
     Route: 048
     Dates: start: 202106
  2. XYREM [Suspect]
     Active Substance: SODIUM OXYBATE
     Indication: Cataplexy
     Dosage: 3.5 GRAM, BID
     Route: 048
  3. XYREM [Suspect]
     Active Substance: SODIUM OXYBATE
     Indication: Somnolence
     Dosage: 3G FOR FIRST DOSE, 2.5G FOR SECOND DOSE
  4. XYREM [Suspect]
     Active Substance: SODIUM OXYBATE
     Dosage: UNK
  5. XYREM [Suspect]
     Active Substance: SODIUM OXYBATE
     Dosage: UNK, BID
     Dates: start: 20220101
  6. PROPRANOLOL [Suspect]
     Active Substance: PROPRANOLOL HYDROCHLORIDE
     Indication: Hypertension
     Dosage: 80 MG
     Dates: start: 2023
  7. PROPRANOLOL [Suspect]
     Active Substance: PROPRANOLOL HYDROCHLORIDE
     Dosage: 60 MG
  8. PROAIR HFA [Concomitant]
     Active Substance: ALBUTEROL SULFATE
     Dosage: INHALE 2 PUFFS INTO THE LUNGS EVERY 4 HOURS AS NEEDED FOR WHEEZING OR SHORTNESS OF BREATH
  9. EXCEDRIN MIGRAINE [Concomitant]
     Active Substance: ACETAMINOPHEN\ASPIRIN\CAFFEINE
     Dosage: 250-250-65MG, 2 TABLETS EVERY 6 HOURS AS NEEDED
  10. WELLBUTRIN XL [Concomitant]
     Active Substance: BUPROPION HYDROCHLORIDE
     Dosage: TAKE 1 TABLET (150 MG TOTAL) BY MOUTH DAILY
     Route: 048
  11. CHOLECALCIFEROL [Concomitant]
     Active Substance: CHOLECALCIFEROL
     Dosage: 1000 UNITS, 1 CAPSULE DAILY
  12. MOMETASONE FUROATE [Concomitant]
     Active Substance: MOMETASONE FUROATE
     Dosage: 50MCG/ACT, 2 SPRAYS BY NASAL ROUTE EVERY EVENING
     Route: 045
  13. MINERALS\VITAMINS [Concomitant]
     Active Substance: MINERALS\VITAMINS
  14. INDERAL LA [Concomitant]
     Active Substance: PROPRANOLOL HYDROCHLORIDE
     Dosage: TAKE 1 CAPSULE (80MG TOTAL) BY MOUTH DAILY
     Route: 048
  15. NULYTELY [MACROGOL 3350;POTASSIUM CHLORIDE;SODIUM BICARBONATE;SODIUM C [Concomitant]
     Dosage: 420 GRAM (TAKE AS DIRECTED BY MD)
  16. ALBUTEROL SULFATE [Concomitant]
     Active Substance: ALBUTEROL SULFATE
     Dosage: UNK
  17. BUPROPION HYDROCHLORIDE [Concomitant]
     Active Substance: BUPROPION HYDROCHLORIDE
     Dosage: UNK
  18. FLUTICASONE PROPIONATE [Concomitant]
     Active Substance: FLUTICASONE PROPIONATE
     Dosage: UNK
  19. XIIDRA [Concomitant]
     Active Substance: LIFITEGRAST
  20. LIFITEGRAST [Concomitant]
     Active Substance: LIFITEGRAST
  21. MIRABEGRON [Concomitant]
     Active Substance: MIRABEGRON

REACTIONS (6)
  - Hypertension [Not Recovered/Not Resolved]
  - Dizziness [Not Recovered/Not Resolved]
  - Hypotension [Unknown]
  - Nasopharyngitis [Not Recovered/Not Resolved]
  - Intentional product use issue [Unknown]
  - Product administration interrupted [Unknown]

NARRATIVE: CASE EVENT DATE: 20210601
